FAERS Safety Report 9992783 (Version 2)
Quarter: 2014Q2

REPORT INFORMATION
  Report Type: Report from Study
  Country: CA (occurrence: CA)
  Receive Date: 20140310
  Receipt Date: 20140420
  Transmission Date: 20141212
  Serious: Yes (Death)
  Sender: FDA-Public Use
  Company Number: PHHY2014CA028062

PATIENT
  Sex: Male

DRUGS (12)
  1. CLOZARIL [Suspect]
     Indication: SCHIZOPHRENIA
     Dosage: 225 MG, UNK
     Route: 048
  2. INSULIN [Concomitant]
     Indication: DIABETES MELLITUS
  3. ONGLYZA [Concomitant]
     Dosage: 5 MG, UNK
     Dates: start: 20131120
  4. LORAZEPAM [Concomitant]
     Dosage: 1 MG, BID
     Dates: start: 20131118
  5. CLOZAPINE [Concomitant]
     Dosage: 225 MG, QHS
     Route: 048
     Dates: start: 20131118
  6. CELEXA [Concomitant]
     Dosage: 60 MG, QD
     Route: 048
     Dates: start: 20131118
  7. RISPERIDONE [Concomitant]
     Dosage: 1 MG, QD
     Route: 048
     Dates: start: 20131118
  8. MICARDIS PLUS [Concomitant]
     Dosage: 40 MG, QD
     Dates: start: 20131113
  9. METFORMIN [Concomitant]
     Dosage: 1000 MG, BID
     Dates: start: 20130712
  10. EZETROL [Concomitant]
     Dosage: 10 MG, QD
     Dates: start: 20130712
  11. LIPITOR [Concomitant]
     Dosage: 40 MG, QD
     Dates: start: 20130712
  12. INSULIN [Concomitant]
     Dosage: 20 UNITS Q AM AND 30 UNITS Q HS
     Dates: start: 20130612

REACTIONS (2)
  - Myocardial infarction [Fatal]
  - Aspiration [Fatal]
